FAERS Safety Report 9745431 (Version 1)
Quarter: 2013Q4

REPORT INFORMATION
  Report Type: Spontaneous
  Country: US (occurrence: US)
  Receive Date: 20131211
  Receipt Date: 20131211
  Transmission Date: 20140711
  Serious: No
  Sender: FDA-Public Use
  Company Number: US-009507513-1312USA001000

PATIENT
  Sex: Male

DRUGS (3)
  1. SAPHRIS [Suspect]
     Indication: BIPOLAR DISORDER
     Dosage: 1 DF, HS
     Route: 060
     Dates: start: 201204, end: 201209
  2. SAPHRIS [Suspect]
     Indication: BIPOLAR DISORDER
     Dosage: 1 DF, HS
     Route: 060
     Dates: start: 200912, end: 201204
  3. SAPHRIS [Suspect]
     Dosage: 1 DF, HS
     Route: 060
     Dates: start: 201209

REACTIONS (4)
  - Headache [Recovered/Resolved]
  - Nausea [Recovered/Resolved]
  - Vomiting [Recovered/Resolved]
  - Diarrhoea [Recovered/Resolved]
